FAERS Safety Report 5020040-1 (Version None)
Quarter: 2006Q2

REPORT INFORMATION
  Report Type: 
  Country: None (occurrence: None)
  Receive Date: 20060607
  Receipt Date: 20060419
  Transmission Date: 20061013
  Serious: Yes (Other)
  Sender: FDA-Public Use
  Company Number: US-GLAXOSMITHKLINE-A0602472A

PATIENT
  Sex: Female

DRUGS (1)
  1. VALTREX [Suspect]
     Indication: HERPES SIMPLEX
     Route: 048
     Dates: start: 20040101, end: 20060201

REACTIONS (4)
  - ABDOMINAL DISCOMFORT [None]
  - ERYTHEMA MULTIFORME [None]
  - FAECAL INCONTINENCE [None]
  - GASTROINTESTINAL PAIN [None]
